FAERS Safety Report 21206460 (Version 4)
Quarter: 2022Q4

REPORT INFORMATION
  Report Type: Spontaneous
  Country: JP (occurrence: JP)
  Receive Date: 20220812
  Receipt Date: 20221214
  Transmission Date: 20230113
  Serious: Yes (Hospitalization)
  Sender: FDA-Public Use
  Company Number: JP-ELI_LILLY_AND_COMPANY-JP202208001341

PATIENT
  Age: 73 Year
  Sex: Female

DRUGS (1)
  1. RETEVMO [Suspect]
     Active Substance: SELPERCATINIB
     Indication: Lung adenocarcinoma
     Dosage: 160 MG, BID
     Route: 048
     Dates: start: 20220722

REACTIONS (10)
  - Hypersensitivity [Recovering/Resolving]
  - Decreased appetite [Recovering/Resolving]
  - Blood lactate dehydrogenase increased [Unknown]
  - Hyperkalaemia [Unknown]
  - Blood creatinine increased [Recovered/Resolved]
  - Dizziness [Unknown]
  - Alanine aminotransferase increased [Unknown]
  - Aspartate aminotransferase increased [Recovered/Resolved]
  - Electrocardiogram QT prolonged [Unknown]
  - Hypertension [Unknown]

NARRATIVE: CASE EVENT DATE: 20220723
